FAERS Safety Report 9098125 (Version 2)
Quarter: 2013Q2

REPORT INFORMATION
  Report Type: Spontaneous
  Country: FR (occurrence: FR)
  Receive Date: 20130213
  Receipt Date: 20130516
  Transmission Date: 20140414
  Serious: Yes (Hospitalization)
  Sender: FDA-Public Use
  Company Number: FR-ABBOTT-13P-056-1048207-00

PATIENT
  Age: 52 Year
  Sex: Female
  Weight: 57 kg

DRUGS (6)
  1. ZECLAR [Suspect]
     Indication: BRONCHITIS
     Route: 048
     Dates: start: 20121227, end: 20130101
  2. ZECLAR [Suspect]
     Indication: COUGH
  3. ZECLAR [Suspect]
     Indication: PRODUCTIVE COUGH
  4. ROACTEMRA [Suspect]
     Indication: RHEUMATOID ARTHRITIS
     Route: 042
     Dates: start: 20090812, end: 20130103
  5. IMETH [Concomitant]
     Indication: RHEUMATOID ARTHRITIS
     Dosage: 10 MG/WEEK
     Route: 048
  6. SPECIAFOLDINE [Concomitant]
     Indication: FOLATE DEFICIENCY
     Route: 048

REACTIONS (10)
  - Dyspnoea [Recovering/Resolving]
  - Hypotension [Recovered/Resolved]
  - Rash papular [Recovering/Resolving]
  - Palatal oedema [Recovering/Resolving]
  - Hypertension [Unknown]
  - Asthenia [Unknown]
  - Diarrhoea [Unknown]
  - Haemorrhoidal haemorrhage [Unknown]
  - Laryngeal disorder [Unknown]
  - Rash papular [Recovering/Resolving]
